FAERS Safety Report 7907860-8 (Version None)
Quarter: 2011Q4

REPORT INFORMATION
  Report Type: 
  Country: None (occurrence: None)
  Receive Date: 20111110
  Receipt Date: 20110926
  Transmission Date: 20120403
  Serious: Yes (Hospitalization)
  Sender: FDA-Public Use
  Company Number: NO-PFIZER INC-2011271490

PATIENT
  Age: 52 Year
  Sex: Female

DRUGS (2)
  1. ALMOGRAN [Concomitant]
     Indication: MIGRAINE
     Dosage: 12.5 MG, DAILY
     Route: 048
     Dates: start: 20100101
  2. PROPRANOLOL HCL [Suspect]
     Indication: MIGRAINE
     Dosage: 160 MG, DAILY
     Route: 048
     Dates: start: 20110830, end: 20110926

REACTIONS (3)
  - IRRITABILITY [None]
  - PERSONALITY CHANGE [None]
  - SOCIAL AVOIDANT BEHAVIOUR [None]
